FAERS Safety Report 4687842-2 (Version None)
Quarter: 2005Q2

REPORT INFORMATION
  Report Type: 
  Country: None (occurrence: None)
  Receive Date: 20050607
  Receipt Date: 20050531
  Transmission Date: 20051028
  Serious: Yes (Hospitalization)
  Sender: FDA-Public Use
  Company Number: GBWYE708531MAY05

PATIENT
  Age: 58 Year
  Sex: Male

DRUGS (3)
  1. RAPAMUNE [Suspect]
     Indication: RENAL TRANSPLANT
     Dosage: 4 MG 1X PER 1 DAY ORAL
     Route: 048
     Dates: start: 20041228, end: 20050527
  2. METHYLPREDNISOLONE [Concomitant]
  3. TACROLIMUS (TACROLIMUS) [Concomitant]

REACTIONS (1)
  - TRANSPLANT REJECTION [None]
